FAERS Safety Report 7412103-8 (Version None)
Quarter: 2011Q2

REPORT INFORMATION
  Report Type: 
  Country: None (occurrence: None)
  Receive Date: 20110405
  Receipt Date: 20110321
  Transmission Date: 20111010
  Serious: Yes (Hospitalization, Other)
  Sender: FDA-Public Use
  Company Number: AUR-APL-2011-01081

PATIENT
  Age: 33 Year
  Sex: Male

DRUGS (3)
  1. SERTRALINE [Suspect]
     Indication: ADJUSTMENT DISORDER
     Dosage: 100MG-DAILY
  2. DIAZEPAM [Suspect]
     Indication: ADJUSTMENT DISORDER
  3. FLUOXETINE [Suspect]
     Indication: ADJUSTMENT DISORDER
     Dosage: 80MG-DAILY-

REACTIONS (17)
  - HALLUCINATION, AUDITORY [None]
  - INSOMNIA [None]
  - ANXIETY [None]
  - CONDITION AGGRAVATED [None]
  - DISTURBANCE IN ATTENTION [None]
  - HAEMATEMESIS [None]
  - NERVOUSNESS [None]
  - MUSCULOSKELETAL STIFFNESS [None]
  - BLOOD PRESSURE INCREASED [None]
  - STRESS [None]
  - DEPRESSION [None]
  - ANGER [None]
  - PANIC ATTACK [None]
  - HYPERREFLEXIA [None]
  - DIZZINESS [None]
  - CONFUSIONAL STATE [None]
  - DISORIENTATION [None]
